FAERS Safety Report 9797031 (Version 1)
Quarter: 2014Q1

REPORT INFORMATION
  Report Type: Spontaneous
  Country: FR (occurrence: FR)
  Receive Date: 20140105
  Receipt Date: 20140105
  Transmission Date: 20141002
  Serious: Yes (Other)
  Sender: FDA-Public Use
  Company Number: FR-ROCHE-1329057

PATIENT
  Age: 43 Year
  Sex: Male

DRUGS (3)
  1. COPEGUS [Suspect]
     Indication: HEPATITIS C
     Route: 048
     Dates: start: 20130328, end: 20131126
  2. PEGASYS [Suspect]
     Indication: HEPATITIS C
     Dosage: ON 03/DEC/2013 AND 10/DEC/2013 RECEIVED 2 INJECTIONS
     Route: 058
     Dates: start: 20120328, end: 20131210
  3. INCIVO [Concomitant]

REACTIONS (1)
  - Convulsion [Recovered/Resolved]
